FAERS Safety Report 23627032 (Version 1)
Quarter: 2024Q1

REPORT INFORMATION
  Report Type: Report from Study
  Country: US (occurrence: US)
  Receive Date: 20240313
  Receipt Date: 20240313
  Transmission Date: 20240409
  Serious: No
  Sender: FDA-Public Use
  Company Number: US-SPRINGWORKS THERAPEUTICS-SW-001174

PATIENT
  Sex: Female

DRUGS (2)
  1. NIROGACESTAT [Suspect]
     Active Substance: NIROGACESTAT
     Indication: Connective tissue neoplasm
     Dosage: 150 MILLIGRAM, BID
     Route: 048
     Dates: start: 20231219
  2. NIROGACESTAT [Suspect]
     Active Substance: NIROGACESTAT
     Indication: Soft tissue neoplasm

REACTIONS (9)
  - Vomiting [Unknown]
  - Blood sodium decreased [Unknown]
  - Dry skin [Unknown]
  - Hair texture abnormal [Unknown]
  - Saliva altered [Unknown]
  - Nasopharyngitis [Unknown]
  - Cough [Unknown]
  - Diarrhoea [Unknown]
  - Nausea [Unknown]
